FAERS Safety Report 11359285 (Version 1)
Quarter: 2015Q3

REPORT INFORMATION
  Report Type: Spontaneous
  Country: JP (occurrence: JP)
  Receive Date: 20150807
  Receipt Date: 20150807
  Transmission Date: 20151125
  Serious: Yes (Other)
  Sender: FDA-Public Use
  Company Number: JP-PFIZER INC-2015260411

PATIENT

DRUGS (1)
  1. CHAMPIX [Suspect]
     Active Substance: VARENICLINE TARTRATE
     Indication: SMOKING CESSATION THERAPY
     Dosage: UNK
     Route: 048
     Dates: start: 20150707, end: 20150722

REACTIONS (5)
  - Stomatitis [Unknown]
  - Paraesthesia oral [Unknown]
  - Paraesthesia [Unknown]
  - Oedema peripheral [Unknown]
  - Throat tightness [Unknown]

NARRATIVE: CASE EVENT DATE: 20150720
